FAERS Safety Report 12723816 (Version 2)
Quarter: 2016Q4

REPORT INFORMATION
  Report Type: Spontaneous
  Country: DE (occurrence: DE)
  Receive Date: 20160908
  Receipt Date: 20161024
  Transmission Date: 20170207
  Serious: Yes (Other)
  Sender: FDA-Public Use
  Company Number: PHHY2016DE121278

PATIENT
  Sex: Female

DRUGS (2)
  1. ZOMETA [Suspect]
     Active Substance: ZOLEDRONIC ACID
     Indication: PROPHYLAXIS
     Dosage: TWICE PER YEAR
     Route: 065
  2. ZOMETA [Suspect]
     Active Substance: ZOLEDRONIC ACID
     Dosage: ONCE PER YEAR
     Route: 065

REACTIONS (4)
  - Inappropriate schedule of drug administration [Unknown]
  - Osteonecrosis of jaw [Unknown]
  - Drug intolerance [Unknown]
  - Jaw disorder [Unknown]
